FAERS Safety Report 9170489 (Version 1)
Quarter: 2013Q1

REPORT INFORMATION
  Report Type: Spontaneous
  Country: GB (occurrence: None)
  Receive Date: 20130311
  Receipt Date: 20130311
  Transmission Date: 20140127
  Serious: Yes (Hospitalization)
  Sender: FDA-Public Use
  Company Number: 2013-03597

PATIENT
  Age: 56 Year
  Sex: Female

DRUGS (10)
  1. INDAPAMIDE [Suspect]
     Route: 048
  2. OLANZAPINE (OLANZAPINE) [Concomitant]
  3. QUININE (QUININE SULFATE) [Concomitant]
  4. FLUOXETINE [Concomitant]
  5. ZOLPIDEM (ZOLPIDEM) [Concomitant]
  6. SIMVASTATIN(SIMVASTATIN) [Concomitant]
  7. METFORMIN [Concomitant]
  8. BRICANYL COMP (GUAIFENSESIN, TERBUTALINE SULFATE) [Concomitant]
  9. TIOTROPIUM (TIOTROPIUM) [Concomitant]
  10. AMLODIPINE [Concomitant]

REACTIONS (3)
  - Convulsion [None]
  - Confusional state [None]
  - Hyponatraemia [None]
